FAERS Safety Report 14852031 (Version 11)
Quarter: 2018Q3

REPORT INFORMATION
  Report Type: Report from Study
  Country: US (occurrence: US)
  Receive Date: 20180507
  Receipt Date: 20180911
  Transmission Date: 20181010
  Serious: Yes (Hospitalization, Other)
  Sender: FDA-Public Use
  Company Number: US-GILEAD-2018-0336812

PATIENT
  Age: 39 Year
  Sex: Female

DRUGS (3)
  1. ADCIRCA [Concomitant]
     Active Substance: TADALAFIL
  2. AMBRISENTAN [Suspect]
     Active Substance: AMBRISENTAN
     Indication: PRODUCT USED FOR UNKNOWN INDICATION
     Dosage: 10 MG, QD
     Route: 065
     Dates: start: 20140810
  3. VELETRI [Concomitant]
     Active Substance: EPOPROSTENOL

REACTIONS (22)
  - Vomiting [Not Recovered/Not Resolved]
  - Headache [Not Recovered/Not Resolved]
  - Dyspnoea exertional [Not Recovered/Not Resolved]
  - Central venous catheterisation [Unknown]
  - Jugular vein distension [Not Recovered/Not Resolved]
  - Cardiac murmur [Not Recovered/Not Resolved]
  - Unevaluable event [Unknown]
  - Ear discomfort [Not Recovered/Not Resolved]
  - Nausea [Not Recovered/Not Resolved]
  - Palpitations [Recovering/Resolving]
  - Infusion site swelling [Not Recovered/Not Resolved]
  - Flushing [Not Recovered/Not Resolved]
  - Hypotension [Not Recovered/Not Resolved]
  - Device related infection [Unknown]
  - Catheterisation cardiac abnormal [Unknown]
  - Diarrhoea [Not Recovered/Not Resolved]
  - Fatigue [Not Recovered/Not Resolved]
  - Oedema peripheral [Not Recovered/Not Resolved]
  - Pain [Not Recovered/Not Resolved]
  - Application site rash [Not Recovered/Not Resolved]
  - Pain in jaw [Not Recovered/Not Resolved]
  - Application site pruritus [Not Recovered/Not Resolved]
